FAERS Safety Report 5981389-9 (Version None)
Quarter: 2008Q4

REPORT INFORMATION
  Report Type: 
  Country: None (occurrence: None)
  Receive Date: 20081205
  Receipt Date: 20081128
  Transmission Date: 20090506
  Serious: Yes (Death, Hospitalization)
  Sender: FDA-Public Use
  Company Number: US-GILEAD-2008-0019258

PATIENT
  Sex: Female

DRUGS (9)
  1. LETAIRIS [Suspect]
     Indication: PULMONARY ARTERIAL HYPERTENSION
     Route: 048
     Dates: start: 20080904
  2. ATRIPLA [Concomitant]
     Indication: HIV INFECTION
  3. REGLAN [Concomitant]
  4. LORAZEPAM [Concomitant]
  5. ALLEGRA [Concomitant]
  6. PROMETHAZINE [Concomitant]
  7. SINGULAIR [Concomitant]
  8. CITALOPRAM HYDROBROMIDE [Concomitant]
  9. VITAMINS [Concomitant]

REACTIONS (1)
  - PULMONARY ARTERIAL HYPERTENSION [None]
